FAERS Safety Report 7011844-4 (Version None)
Quarter: 2010Q3

REPORT INFORMATION
  Report Type: 
  Country: None (occurrence: None)
  Receive Date: 20100924
  Receipt Date: 20100915
  Transmission Date: 20110219
  Serious: Yes (Other)
  Sender: FDA-Public Use
  Company Number: US-ASTRAZENECA-2007UW10990

PATIENT
  Age: 49 Year
  Sex: Male
  Weight: 131.5 kg

DRUGS (34)
  1. SEROQUEL [Suspect]
     Indication: DEPRESSION
     Route: 048
     Dates: start: 19850101
  2. SEROQUEL [Suspect]
     Dosage: 300-900MG
     Route: 048
     Dates: start: 20020101, end: 20051101
  3. SEROQUEL [Suspect]
     Dosage: 300-900 MG
     Route: 048
     Dates: start: 20040404
  4. SEROQUEL [Suspect]
     Dosage: 200-300MG
     Route: 048
     Dates: start: 20020101, end: 20050403
  5. ZYPREXA [Concomitant]
     Indication: DEPRESSION
     Dates: start: 20010320, end: 20021206
  6. ZYPREXA [Concomitant]
     Dates: start: 20030101
  7. ZYPREXA [Concomitant]
     Dates: start: 20010301, end: 20010501
  8. ZYPREXA [Concomitant]
     Dates: start: 20020101
  9. LISINOPRIL [Concomitant]
     Indication: HYPERTENSION
     Route: 048
     Dates: start: 20060707
  10. TOPROL-XL [Concomitant]
     Indication: HYPERTENSION
     Dosage: 50-100MG
     Route: 048
     Dates: start: 20041201
  11. COUMADIN [Concomitant]
     Dosage: 1-10 MG
     Route: 048
     Dates: start: 20050324
  12. LEXAPRO [Concomitant]
     Route: 048
     Dates: start: 20051004
  13. LUNESTA [Concomitant]
     Route: 048
     Dates: start: 20051004
  14. FLEXERIL [Concomitant]
     Dates: start: 20051030
  15. PLAVIX [Concomitant]
     Route: 048
     Dates: start: 20051004
  16. ABILIFY [Concomitant]
     Dosage: 15-20 MG
     Route: 048
     Dates: start: 20051030
  17. ISRADIPINE [Concomitant]
     Dates: start: 20051030
  18. LANTUS [Concomitant]
     Dosage: 25 UNITS AT BED TIME
     Dates: start: 20060412
  19. NORVASC [Concomitant]
     Dosage: 5-10 MG
     Dates: start: 20051107
  20. PROZAC [Concomitant]
     Dosage: 20-40 MG, 60-80 MG
     Dates: start: 20041201
  21. ZOCOR [Concomitant]
     Dosage: 20-40 MG
     Route: 048
     Dates: start: 20051107
  22. DIOVAN [Concomitant]
     Dosage: 80-160 MG
     Dates: start: 20041201
  23. ORPHENADRINE CITRATE [Concomitant]
     Dates: start: 20050324
  24. ALTOCOR [Concomitant]
     Dates: start: 20041201
  25. CLONIDINE [Concomitant]
     Dosage: 0.2-0.4 MG
     Dates: start: 20051107
  26. DOXAZOSIN MESYLATE [Concomitant]
     Dates: start: 20060412
  27. LASIX [Concomitant]
     Dates: start: 20051107
  28. LOPRESSOR [Concomitant]
     Dates: start: 20051107
  29. FLAGYL [Concomitant]
     Dates: start: 20051107
  30. OXYCODONE [Concomitant]
     Dates: start: 20051107, end: 20051128
  31. ASPIRIN [Concomitant]
     Route: 048
     Dates: start: 20051004
  32. WELLBUTRIN SR [Concomitant]
     Indication: DEPRESSION
  33. VISTARIL [Concomitant]
  34. ZOLOFT [Concomitant]

REACTIONS (13)
  - ANGINA UNSTABLE [None]
  - ANKLE FRACTURE [None]
  - BLOOD CHOLESTEROL INCREASED [None]
  - BLOOD TRIGLYCERIDES INCREASED [None]
  - CARDIAC DISORDER [None]
  - CARDIAC FAILURE CONGESTIVE [None]
  - CORONARY ARTERY DISEASE [None]
  - HYPERLIPIDAEMIA [None]
  - INJURY [None]
  - JOINT SPRAIN [None]
  - PAIN [None]
  - ROAD TRAFFIC ACCIDENT [None]
  - TYPE 2 DIABETES MELLITUS [None]
